FAERS Safety Report 5982999-5 (Version None)
Quarter: 2008Q4

REPORT INFORMATION
  Report Type: 
  Country: None (occurrence: None)
  Receive Date: 20081205
  Receipt Date: 20081205
  Transmission Date: 20090506
  Serious: No
  Sender: FDA-Public Use
  Company Number: None

PATIENT

DRUGS (1)
  1. FENTANYL-100 [Suspect]
     Dosage: TRANSDERMAL  (DURATION: RECENTLY, LAST 60 DAYS?)
     Route: 062

REACTIONS (1)
  - DEVICE FAILURE [None]
